FAERS Safety Report 7686151-7 (Version None)
Quarter: 2011Q3

REPORT INFORMATION
  Report Type: 
  Country: None (occurrence: None)
  Receive Date: 20110816
  Receipt Date: 20110804
  Transmission Date: 20111222
  Serious: No
  Sender: FDA-Public Use
  Company Number: US-PFIZER INC-2011178509

PATIENT
  Sex: Female
  Weight: 104 kg

DRUGS (3)
  1. PEPCID [Concomitant]
  2. AVINZA [Suspect]
     Indication: CYSTIC FIBROSIS
     Dosage: 60 MG, 1X/DAY
     Route: 048
     Dates: start: 20060101
  3. AVINZA [Suspect]
     Indication: PANCREATITIS

REACTIONS (1)
  - DRUG EFFECT DECREASED [None]
